FAERS Safety Report 21511338 (Version 2)
Quarter: 2024Q4

REPORT INFORMATION
  Report Type: Spontaneous
  Country: US (occurrence: US)
  Receive Date: 20221027
  Receipt Date: 20241226
  Transmission Date: 20250114
  Serious: Yes (Other)
  Sender: AMGEN
  Company Number: US-AMGEN-USASP2022178763

PATIENT
  Age: 71 Year
  Sex: Male

DRUGS (6)
  1. REPATHA [Suspect]
     Active Substance: EVOLOCUMAB
     Indication: Hypercholesterolaemia
     Dosage: 140 MILLIGRAM PER MILLILITRE, Q2WK
     Route: 058
     Dates: start: 2021, end: 202201
  2. REPATHA [Suspect]
     Active Substance: EVOLOCUMAB
     Dosage: 140 MILLIGRAM PER MILLILITRE, Q2WK
     Route: 058
     Dates: start: 2022, end: 202310
  3. REPATHA [Suspect]
     Active Substance: EVOLOCUMAB
     Dosage: 140 MILLIGRAM PER MILLILITRE, Q2WK
     Route: 058
     Dates: start: 2023
  4. ZOCOR [Concomitant]
     Active Substance: SIMVASTATIN
     Dosage: 5 MILLIGRAM, STARTED AT AGE 50
  5. CIALIS [Concomitant]
     Active Substance: TADALAFIL
     Indication: Nocturia
     Dosage: 5 MILLIGRAM AT NIGHT
  6. ASPIRIN [Concomitant]
     Active Substance: ASPIRIN
     Dosage: 81 MILLIGRAM IN AM

REACTIONS (8)
  - Muscle rupture [Unknown]
  - Blood pressure systolic increased [Unknown]
  - Dizziness [Unknown]
  - Muscle spasms [Unknown]
  - Tendon rupture [Unknown]
  - Back injury [Unknown]
  - Intervertebral disc protrusion [Unknown]
  - COVID-19 [Unknown]

NARRATIVE: CASE EVENT DATE: 20220101
